FAERS Safety Report 7338613-X (Version None)
Quarter: 2011Q1

REPORT INFORMATION
  Report Type: 
  Country: None (occurrence: None)
  Receive Date: 20110308
  Receipt Date: 20110224
  Transmission Date: 20110831
  Serious: Yes (Hospitalization)
  Sender: FDA-Public Use
  Company Number: US-CELGENEUS-163-50794-10102526

PATIENT
  Age: 42 Year
  Sex: Male
  Weight: 73.9 kg

DRUGS (19)
  1. ASA [Concomitant]
     Route: 065
  2. FAMCYCLOVIR [Concomitant]
     Route: 065
  3. NITROGLYCERIN [Concomitant]
     Route: 065
  4. OXYCODONE [Concomitant]
     Route: 065
  5. ALLOPURINOL [Concomitant]
     Route: 065
  6. VIDAZA [Suspect]
     Dosage: 25 MILLIGRAM/SQ. METER
     Route: 065
     Dates: start: 20101015, end: 20101019
  7. VINCRISTINE [Suspect]
     Dosage: 2 MILLIGRAM
     Route: 051
     Dates: start: 20101023
  8. CAPTOPRIL [Concomitant]
     Route: 065
  9. IRON SULFATETHIAMIN COMPOUND TAB [Concomitant]
     Route: 065
  10. RBC'S [Concomitant]
     Dosage: 2 UNITS
     Route: 051
  11. COLACE [Concomitant]
     Route: 065
  12. METHYLPREDNISOLONE ACETATE [Concomitant]
     Route: 065
  13. PROTONIX [Concomitant]
     Route: 065
  14. PLAVIX [Concomitant]
     Route: 065
  15. VIDAZA [Suspect]
     Dosage: 25 MILLIGRAM/SQ. METER
     Route: 065
     Dates: start: 20101105
  16. CYCLOPHOSPHAMIDE [Suspect]
     Dosage: 300 MILLIGRAM/SQ. METER
     Route: 065
     Dates: start: 20101020
  17. CYCLOPHOSPHAMIDE [Suspect]
     Dosage: 300 MILLIGRAM/SQ. METER
     Route: 065
     Dates: start: 20101023
  18. RITUXIMAB [Suspect]
     Dosage: 300 MILLIGRAM
     Route: 051
     Dates: start: 20101024
  19. PHENERGAN [Concomitant]
     Route: 065

REACTIONS (2)
  - PNEUMONIA [None]
  - CHRONIC OBSTRUCTIVE PULMONARY DISEASE [None]
